FAERS Safety Report 12168462 (Version 2)
Quarter: 2016Q2

REPORT INFORMATION
  Report Type: Report from Study
  Country: JP (occurrence: JP)
  Receive Date: 20160310
  Receipt Date: 20160429
  Transmission Date: 20160815
  Serious: Yes (Hospitalization)
  Sender: FDA-Public Use
  Company Number: JP-ACTELION-A-CH2016-132506

PATIENT
  Age: 32 Year
  Sex: Female

DRUGS (8)
  1. SILDENAFIL CITRATE. [Concomitant]
     Active Substance: SILDENAFIL CITRATE
  2. OXYGEN. [Concomitant]
     Active Substance: OXYGEN
  3. FUROSEMIDE. [Concomitant]
     Active Substance: FUROSEMIDE
  4. SPIRONOLACTONE. [Concomitant]
     Active Substance: SPIRONOLACTONE
  5. FERROUS CITRATE [Concomitant]
     Active Substance: FERROUS CITRATE
  6. EPOPROSTENOL. [Suspect]
     Active Substance: EPOPROSTENOL
     Indication: PORTOPULMONARY HYPERTENSION
     Dosage: 3 NG/KG, PER MIN
     Route: 042
     Dates: start: 20151029, end: 20151204
  7. MACITENTAN [Suspect]
     Active Substance: MACITENTAN
     Indication: PORTOPULMONARY HYPERTENSION
     Dosage: 10 MG, QD
     Route: 048
     Dates: start: 20151028
  8. DOBUTAMINE [Concomitant]
     Active Substance: DOBUTAMINE\DOBUTAMINE HYDROCHLORIDE

REACTIONS (4)
  - Cerebral haemorrhage [Recovered/Resolved]
  - Hemiparesis [Recovered/Resolved]
  - Subdural haematoma [Recovered/Resolved]
  - Depressed level of consciousness [Recovered/Resolved]

NARRATIVE: CASE EVENT DATE: 20151113
